FAERS Safety Report 18812615 (Version 4)
Quarter: 2022Q1

REPORT INFORMATION
  Report Type: Report from Study
  Country: CO (occurrence: CO)
  Receive Date: 20210130
  Receipt Date: 20220329
  Transmission Date: 20220423
  Serious: Yes (Hospitalization)
  Sender: FDA-Public Use
  Company Number: NVSC2021CO008348

PATIENT
  Age: 71 Year
  Sex: Female
  Weight: 56 kg

DRUGS (8)
  1. RUXOLITINIB [Suspect]
     Active Substance: RUXOLITINIB
     Indication: Myelofibrosis
     Dosage: 10 MG, Q12H (2 YEARS AGO APPROXIMATELY)
     Route: 048
  2. RUXOLITINIB [Suspect]
     Active Substance: RUXOLITINIB
     Dosage: UNK, QD
     Route: 048
  3. RUXOLITINIB [Suspect]
     Active Substance: RUXOLITINIB
     Dosage: UNK UNK, Q12H
     Route: 048
  4. JADENU [Suspect]
     Active Substance: DEFERASIROX
     Indication: Myelodysplastic syndrome
     Dosage: 360 MG, QD (3 MONTHS AGO APPROXIMATELY)
     Route: 048
  5. JADENU [Suspect]
     Active Substance: DEFERASIROX
     Indication: Iron overload
     Dosage: UNK, QD
     Route: 048
  6. LOSARTAN [Suspect]
     Active Substance: LOSARTAN
     Indication: Hypertension
     Dosage: 50 MG, Q12H (ONE YEAR AGO)
     Route: 048
  7. FUROSEMIDE [Concomitant]
     Active Substance: FUROSEMIDE
     Indication: Fluid retention
     Dosage: 40 MG, QD (ONE YEAR AGO)
     Route: 048
  8. WARFARIN [Concomitant]
     Active Substance: WARFARIN
     Indication: Anticoagulant therapy
     Dosage: 5 MG, QD (OVER ONE YEAR AGO)
     Route: 048

REACTIONS (22)
  - Blood disorder [Unknown]
  - Hypertension [Unknown]
  - Pyrexia [Unknown]
  - Blood creatinine increased [Unknown]
  - Mouth haemorrhage [Recovered/Resolved]
  - Stomatitis [Recovered/Resolved]
  - Sensation of foreign body [Unknown]
  - Haemoglobin decreased [Unknown]
  - Pharyngeal swelling [Unknown]
  - Ear pain [Unknown]
  - Swelling [Unknown]
  - Vomiting [Unknown]
  - Malaise [Unknown]
  - Back pain [Unknown]
  - Anaemia [Unknown]
  - Fatigue [Unknown]
  - Malaise [Recovered/Resolved]
  - Oropharyngeal pain [Recovered/Resolved]
  - Eating disorder [Unknown]
  - Pharyngitis [Unknown]
  - Inappropriate schedule of product administration [Unknown]
  - Off label use [Unknown]

NARRATIVE: CASE EVENT DATE: 20210101
